FAERS Safety Report 8811813 (Version 3)
Quarter: 2013Q3

REPORT INFORMATION
  Report Type: Spontaneous
  Country: CA (occurrence: CA)
  Receive Date: 20120927
  Receipt Date: 20130823
  Transmission Date: 20140515
  Serious: Yes (Hospitalization)
  Sender: FDA-Public Use
  Company Number: CA-GLAXOSMITHKLINE-A0993580A

PATIENT
  Age: 56 Year
  Sex: Female

DRUGS (3)
  1. REVOLADE [Suspect]
     Indication: IMMUNE THROMBOCYTOPENIC PURPURA
     Dosage: 50MG PER DAY
     Route: 065
     Dates: start: 20120814, end: 20120823
  2. OXAZEPAM [Concomitant]
  3. ACYCLOVIR [Concomitant]

REACTIONS (15)
  - Sjogren^s syndrome [Unknown]
  - Nausea [Recovered/Resolved]
  - Vomiting [Recovered/Resolved]
  - Ill-defined disorder [Not Recovered/Not Resolved]
  - Abdominal pain [Recovered/Resolved]
  - Liver function test abnormal [Unknown]
  - Blood bilirubin increased [Unknown]
  - Arthropod bite [Unknown]
  - Skin warm [Unknown]
  - Induration [Unknown]
  - Thrombophlebitis superficial [Recovered/Resolved]
  - Platelet count decreased [Unknown]
  - Arthralgia [Not Recovered/Not Resolved]
  - Joint swelling [Unknown]
  - Local swelling [Unknown]
